FAERS Safety Report 7600162-9 (Version None)
Quarter: 2011Q3

REPORT INFORMATION
  Report Type: 
  Country: None (occurrence: None)
  Receive Date: 20110711
  Receipt Date: 20110630
  Transmission Date: 20111222
  Serious: Yes (Hospitalization, Other)
  Sender: FDA-Public Use
  Company Number: PHHY2010US25187

PATIENT
  Sex: Female

DRUGS (12)
  1. VITAMIN D [Concomitant]
     Dosage: 1000 IU, BID
  2. GABAPENTIN [Concomitant]
     Dosage: 300 MG, TID
  3. CYMBALTA [Concomitant]
     Dosage: 30 MG, BID
  4. TIZANIDINE HCL [Concomitant]
     Dosage: 4 MG, TID
  5. DIPHENHYDRAMINE HCL [Concomitant]
     Dosage: 25 MG, BID
  6. VITAMIN D [Concomitant]
     Dosage: 1 DF, QD
  7. HYDROCODONE BITARTRATE [Concomitant]
     Dosage: 500 MG, BID
  8. VITAMIN D [Concomitant]
  9. TEMAZEPAM [Concomitant]
     Dosage: 30 MG, QHS
  10. EXTAVIA [Suspect]
     Indication: MULTIPLE SCLEROSIS
     Dosage: 0.25 MG, QOD
     Route: 058
     Dates: start: 20100208
  11. HYDROCODONE BITARTRATE [Concomitant]
     Dosage: 7.5/500 Q6H
  12. CITALOPRAM [Concomitant]
     Dosage: 20 MG, QD

REACTIONS (23)
  - LIMB DISCOMFORT [None]
  - BONE CYST [None]
  - WEIGHT INCREASED [None]
  - PAIN [None]
  - BALANCE DISORDER [None]
  - PULMONARY EMBOLISM [None]
  - FACIAL PAIN [None]
  - VISION BLURRED [None]
  - INJECTION SITE PRURITUS [None]
  - FACIAL NERVE DISORDER [None]
  - SWELLING FACE [None]
  - HEADACHE [None]
  - INJECTION SITE SWELLING [None]
  - FALL [None]
  - HYPOAESTHESIA [None]
  - MUSCULAR WEAKNESS [None]
  - CARTILAGE INJURY [None]
  - SYNCOPE [None]
  - BONE DISORDER [None]
  - INJECTION SITE CYST [None]
  - CEREBROVASCULAR ACCIDENT [None]
  - INJECTION SITE ERYTHEMA [None]
  - JOINT STIFFNESS [None]
